FAERS Safety Report 20038678 (Version 1)
Quarter: 2021Q4

REPORT INFORMATION
  Report Type: Spontaneous
  Country: FR (occurrence: FR)
  Receive Date: 20211105
  Receipt Date: 20211105
  Transmission Date: 20220303
  Serious: Yes (Other)
  Sender: FDA-Public Use
  Company Number: None

PATIENT
  Age: 42 Year
  Sex: Female

DRUGS (2)
  1. CARBAMAZEPINE [Suspect]
     Active Substance: CARBAMAZEPINE
     Indication: Bipolar disorder
     Dosage: UNSPECIFIED
     Route: 048
     Dates: start: 202105, end: 20210615
  2. DISULFIRAM [Suspect]
     Active Substance: DISULFIRAM
     Indication: Alcohol detoxification
     Dosage: UNSPECIFIED
     Route: 048
     Dates: start: 202103, end: 20210618

REACTIONS (1)
  - Polyneuropathy [Recovering/Resolving]

NARRATIVE: CASE EVENT DATE: 20210601
